FAERS Safety Report 14964230 (Version 6)
Quarter: 2018Q4

REPORT INFORMATION
  Report Type: Report from Study
  Country: FR (occurrence: FR)
  Receive Date: 20180601
  Receipt Date: 20181029
  Transmission Date: 20190204
  Serious: Yes (Other)
  Sender: FDA-Public Use
  Company Number: FR-TEVA-2018-FR-899053

PATIENT
  Age: 43 Year
  Sex: Male
  Weight: 96 kg

DRUGS (8)
  1. ISENTRESS [Concomitant]
     Active Substance: RALTEGRAVIR POTASSIUM
     Dosage: UNK
     Route: 065
     Dates: start: 20170115
  2. OMEPRAZOLE. [Suspect]
     Active Substance: OMEPRAZOLE
     Indication: PRODUCT USED FOR UNKNOWN INDICATION
     Dosage: UNK
     Route: 065
     Dates: start: 20150825, end: 20161220
  3. DOLUTEGRAVIR TABLET [Suspect]
     Active Substance: DOLUTEGRAVIR
     Indication: HIV INFECTION
     Dosage: UNK
     Route: 065
     Dates: start: 20161220, end: 20170123
  4. ABACAVIR. [Suspect]
     Active Substance: ABACAVIR
     Indication: HIV INFECTION
     Dosage: 600 MILLIGRAM DAILY;
     Route: 065
     Dates: start: 2006, end: 20161220
  5. TENOFOVIR DISOPROXIL FUMARATE TABLET [Suspect]
     Active Substance: TENOFOVIR DISOPROXIL FUMARATE
     Indication: HIV INFECTION
     Dosage: UNK
     Route: 065
     Dates: start: 2003, end: 20160405
  6. INTELENCE [Concomitant]
     Active Substance: ETRAVIRINE
     Dosage: UNK
     Route: 065
     Dates: start: 20170123
  7. RILPIVIRINE [Suspect]
     Active Substance: RILPIVIRINE
     Indication: HIV INFECTION
     Dosage: UNK
     Route: 065
     Dates: start: 20161220, end: 20170123
  8. ABACAVIRSULPHATE+DOLUTEGRAVIR+LAMIVUDINE TABLET [Suspect]
     Active Substance: ABACAVIR SULFATE\DOLUTEGRAVIR SODIUM\LAMIVUDINE
     Indication: HIV INFECTION
     Dosage: UNK
     Route: 065
     Dates: start: 20160405, end: 20161220

REACTIONS (3)
  - Blood creatinine increased [Not Recovered/Not Resolved]
  - Renal failure [Not Recovered/Not Resolved]
  - Acute kidney injury [Not Recovered/Not Resolved]

NARRATIVE: CASE EVENT DATE: 20160726
